FAERS Safety Report 4940055-9 (Version None)
Quarter: 2006Q1

REPORT INFORMATION
  Report Type: 
  Country: None (occurrence: None)
  Receive Date: 20060310
  Receipt Date: 20060227
  Transmission Date: 20060701
  Serious: Yes (Life-Threatening, Hospitalization)
  Sender: FDA-Public Use
  Company Number: PHHO2006JP03503

PATIENT
  Age: 71 Year
  Sex: Male
  Weight: 50 kg

DRUGS (18)
  1. ENTACAPONE [Suspect]
     Indication: PARKINSON'S DISEASE
     Dosage: 1200 MG, UNK
     Route: 048
     Dates: start: 20031120
  2. MADOPAR [Concomitant]
     Indication: PARKINSON'S DISEASE
  3. SYMMETREL [Concomitant]
     Indication: PARKINSON'S DISEASE
  4. DOPS [Concomitant]
     Indication: PARKINSON'S DISEASE
  5. CABASER [Concomitant]
     Indication: PARKINSON'S DISEASE
  6. DOMIN [Concomitant]
     Indication: PARKINSON'S DISEASE
  7. DEPAS [Concomitant]
     Indication: ANXIETY
  8. ANAFRANIL [Concomitant]
     Indication: ANXIETY DISORDER
  9. GASMOTIN [Concomitant]
     Indication: CONSTIPATION
  10. PURSENNID [Concomitant]
     Indication: CONSTIPATION
  11. BASEN [Concomitant]
     Indication: DIABETES MELLITUS
  12. TOLBUTAMIDE [Concomitant]
     Indication: DIABETES MELLITUS
  13. ALOSENN [Concomitant]
     Indication: CONSTIPATION
  14. INTEBAN [Concomitant]
     Indication: OSTEOARTHRITIS
  15. ADOFEED [Concomitant]
     Indication: OSTEOARTHRITIS
  16. KETOPROFEN [Concomitant]
     Indication: OSTEOARTHRITIS
  17. KERATINAMIN [Concomitant]
     Indication: HYPERKERATOSIS
  18. CINAL [Concomitant]
     Indication: MALABSORPTION

REACTIONS (9)
  - ACTIVITIES OF DAILY LIVING IMPAIRED [None]
  - COMA [None]
  - CONFUSIONAL STATE [None]
  - DEPRESSED LEVEL OF CONSCIOUSNESS [None]
  - FALL [None]
  - ORAL INTAKE REDUCED [None]
  - PUPILLARY LIGHT REFLEX TESTS ABNORMAL [None]
  - SUBDURAL HAEMATOMA [None]
  - SUBDURAL HAEMATOMA EVACUATION [None]
